FAERS Safety Report 12934919 (Version 1)
Quarter: 2016Q4

REPORT INFORMATION
  Report Type: Spontaneous
  Country: US (occurrence: US)
  Receive Date: 20161112
  Receipt Date: 20161112
  Transmission Date: 20170207
  Serious: No
  Sender: FDA-Public Use
  Company Number: US-009507513-1611USA004321

PATIENT
  Age: 45 Year
  Sex: Female

DRUGS (8)
  1. ALIGN [Concomitant]
     Active Substance: BIFIDOBACTERIUM LONGUM SUBSP. INFANTIS
     Dosage: 1 DF, QD
  2. OMEPRAZOLE. [Concomitant]
     Active Substance: OMEPRAZOLE
     Dosage: 40 MG, QD
  3. ATENOLOL. [Concomitant]
     Active Substance: ATENOLOL
     Dosage: 12.5 MG, QD
  4. VALTREX [Concomitant]
     Active Substance: VALACYCLOVIR HYDROCHLORIDE
     Dosage: 1 G, PRN
  5. OMEGA-3 ACIDS [Concomitant]
     Active Substance: OMEGA-3 FATTY ACIDS
     Dosage: 1000 MG, DAILY
  6. LYSINE [Concomitant]
     Active Substance: LYSINE
     Dosage: 500 MG, QD
  7. SINGULAIR [Suspect]
     Active Substance: MONTELUKAST SODIUM
     Indication: SINUS HEADACHE
     Dosage: 10 MG, QD
     Route: 048
     Dates: start: 20161026, end: 20161108
  8. LYRICA [Concomitant]
     Active Substance: PREGABALIN
     Dosage: 75 MG, TID

REACTIONS (2)
  - Alopecia [Unknown]
  - Off label use [Unknown]

NARRATIVE: CASE EVENT DATE: 20161026
